FAERS Safety Report 5935236-1 (Version None)
Quarter: 2008Q4

REPORT INFORMATION
  Report Type: 
  Country: None (occurrence: None)
  Receive Date: 20081014
  Receipt Date: 20080904
  Transmission Date: 20090506
  Serious: Yes (Other)
  Sender: FDA-Public Use
  Company Number: IMP_03789_2008

PATIENT
  Sex: Male
  Weight: 86.1834 kg

DRUGS (5)
  1. BUDEPRION 300 MG (NOT SPECIFIED) [Suspect]
     Indication: DEPRESSION
     Dosage: (300 MG QD ORAL)
     Route: 048
     Dates: start: 20070301, end: 20070901
  2. LISINOPRIL [Concomitant]
  3. ZETIA [Concomitant]
  4. LUNESTA [Concomitant]
  5. LEXAPRO [Concomitant]

REACTIONS (3)
  - DEPRESSION [None]
  - DRUG INEFFECTIVE [None]
  - PRODUCT QUALITY ISSUE [None]
